FAERS Safety Report 11442351 (Version 2)
Quarter: 2016Q2

REPORT INFORMATION
  Report Type: Spontaneous
  Country: US (occurrence: US)
  Receive Date: 20150901
  Receipt Date: 20160419
  Transmission Date: 20160815
  Serious: Yes (Hospitalization, Other)
  Sender: FDA-Public Use
  Company Number: ADR-2015-00394

PATIENT
  Age: 25 Year
  Sex: Male

DRUGS (12)
  1. LINACLOTIDE [Suspect]
     Active Substance: LINACLOTIDE
  2. LIORESAL [Suspect]
     Active Substance: BACLOFEN
     Dosage: 805 MCG/DAY
     Route: 037
  3. POTASSIUM [Suspect]
     Active Substance: POTASSIUM
  4. VITAMIN C [Suspect]
     Active Substance: ASCORBIC ACID
  5. FLOMAX [Suspect]
     Active Substance: TAMSULOSIN HYDROCHLORIDE
  6. SENNA [Suspect]
     Active Substance: SENNA LEAF\SENNOSIDES\SENNOSIDES A AND B
  7. MIRALAX [Suspect]
     Active Substance: POLYETHYLENE GLYCOL 3350
  8. BACTRIM DS [Suspect]
     Active Substance: SULFAMETHOXAZOLE\TRIMETHOPRIM
  9. TRAZODONE [Suspect]
     Active Substance: TRAZODONE HYDROCHLORIDE
  10. LIORESAL [Suspect]
     Active Substance: BACLOFEN
     Dosage: 1150 MCG/DAY
     Route: 037
     Dates: start: 20141230
  11. ASPIRIN. [Suspect]
     Active Substance: ASPIRIN
  12. DULCOLAX NOS [Suspect]
     Active Substance: BISACODYL OR DOCUSATE SODIUM

REACTIONS (9)
  - Medical device site discharge [Recovered/Resolved]
  - Muscle spasticity [Recovered/Resolved]
  - Wound dehiscence [Recovered/Resolved]
  - Medical device site extravasation [Recovered/Resolved]
  - Medical device site pain [Recovered/Resolved]
  - Post procedural infection [Recovered/Resolved]
  - Therapeutic response decreased [Recovered/Resolved]
  - Muscle spasms [Recovered/Resolved]
  - Cerebrospinal fluid leakage [Recovered/Resolved]
